FAERS Safety Report 4681360-3 (Version None)
Quarter: 2005Q2

REPORT INFORMATION
  Report Type: 
  Country: None (occurrence: None)
  Receive Date: 20050601
  Receipt Date: 20041221
  Transmission Date: 20051028
  Serious: Yes (Other)
  Sender: FDA-Public Use
  Company Number: 200411420

PATIENT
  Age: 68 Year
  Sex: Male

DRUGS (3)
  1. ZYMAR [Suspect]
     Indication: POSTOPERATIVE CARE
     Dosage: 1 DROP QID EYE
     Dates: start: 20041201, end: 20041205
  2. ZYMAR [Suspect]
     Indication: PREOPERATIVE CARE
     Dosage: 1 DROP QID EYE
     Dates: start: 20041201, end: 20041205
  3. PRED FORTE [Concomitant]

REACTIONS (3)
  - CONJUNCTIVITIS ALLERGIC [None]
  - ENDOPHTHALMITIS [None]
  - PROCEDURAL COMPLICATION [None]
